FAERS Safety Report 9863977 (Version 2)
Quarter: 2014Q1

REPORT INFORMATION
  Report Type: Spontaneous
  Country: GB (occurrence: GB)
  Receive Date: 20140203
  Receipt Date: 20140217
  Transmission Date: 20141002
  Serious: Yes (Other)
  Sender: FDA-Public Use
  Company Number: GB-ABBVIE-14P-167-1194561-00

PATIENT
  Age: 36 Year
  Sex: 0
  Weight: 51 kg

DRUGS (8)
  1. HUMIRA [Suspect]
     Indication: PSORIATIC ARTHROPATHY
     Route: 058
     Dates: end: 20130628
  2. HUMIRA [Suspect]
     Route: 058
     Dates: end: 20140110
  3. ETANERCEPT [Suspect]
     Indication: PRODUCT USED FOR UNKNOWN INDICATION
  4. TRAMADOL [Concomitant]
     Indication: PAIN
     Route: 048
  5. ADCAL D3 [Concomitant]
     Indication: VITAMIN D DEFICIENCY
     Dosage: T
     Route: 048
  6. GABAPENTIN [Concomitant]
     Indication: PAIN
     Route: 048
  7. MAXITRAM [Concomitant]
     Indication: PAIN
     Route: 048
  8. AMITRIPTYLINE [Concomitant]
     Indication: PAIN
     Route: 048

REACTIONS (4)
  - Leukopenia [Recovered/Resolved]
  - White blood cell count decreased [Unknown]
  - White blood cell count decreased [Recovered/Resolved]
  - Neutrophil count decreased [Unknown]
